FAERS Safety Report 18962790 (Version 1)
Quarter: 2021Q1

REPORT INFORMATION
  Report Type: Spontaneous
  Country: US (occurrence: US)
  Receive Date: 20210302
  Receipt Date: 20210302
  Transmission Date: 20210420
  Serious: Yes (Hospitalization)
  Sender: FDA-Public Use
  Company Number: None

PATIENT
  Age: 22 Month
  Sex: Male

DRUGS (4)
  1. AFINITOR DISPERZ [Suspect]
     Active Substance: EVEROLIMUS
     Route: 048
     Dates: start: 20200716
  2. VIMPAT [Concomitant]
     Active Substance: LACOSAMIDE
  3. VIGABATRIN. [Concomitant]
     Active Substance: VIGABATRIN
  4. CLOBAZAM. [Concomitant]
     Active Substance: CLOBAZAM

REACTIONS (1)
  - Brain operation [None]

NARRATIVE: CASE EVENT DATE: 20201201
